FAERS Safety Report 14572206 (Version 1)
Quarter: 2018Q1

REPORT INFORMATION
  Report Type: Spontaneous
  Country: SE (occurrence: SE)
  Receive Date: 20180226
  Receipt Date: 20180226
  Transmission Date: 20180509
  Serious: Yes (Life-Threatening)
  Sender: FDA-Public Use
  Company Number: SE-ELI_LILLY_AND_COMPANY-SE201802010145

PATIENT
  Age: 74 Year
  Sex: Female

DRUGS (1)
  1. GEMZAR [Suspect]
     Active Substance: GEMCITABINE HYDROCHLORIDE
     Indication: TUMOUR OF AMPULLA OF VATER
     Dosage: UNK, UNKNOWN
     Route: 065
     Dates: start: 2017

REACTIONS (2)
  - Haemolytic anaemia [Not Recovered/Not Resolved]
  - Haemolytic uraemic syndrome [Not Recovered/Not Resolved]

NARRATIVE: CASE EVENT DATE: 20180123
